FAERS Safety Report 18811748 (Version 1)
Quarter: 2021Q1

REPORT INFORMATION
  Report Type: Spontaneous
  Country: US (occurrence: US)
  Receive Date: 20210129
  Receipt Date: 20210129
  Transmission Date: 20210419
  Serious: Yes (Other)
  Sender: FDA-Public Use
  Company Number: US-LA JOLLA PHARMACEUTICAL COMPANY-0000378

PATIENT
  Age: 61 Year
  Sex: Male

DRUGS (13)
  1. GIAPREZA [Suspect]
     Active Substance: ANGIOTENSIN II
     Dosage: 20 NG/KG/MIN
  2. NOREPINEPHRINE. [Concomitant]
     Active Substance: NOREPINEPHRINE
     Indication: VASOPLEGIA SYNDROME
     Dosage: 0.13 UG/KG/MIN (10MG/MIN)
  3. NOREPINEPHRINE. [Concomitant]
     Active Substance: NOREPINEPHRINE
     Dosage: 0.07 UG/KG/MIN (5 UG/MIN)
  4. EPINEPHRINE. [Concomitant]
     Active Substance: EPINEPHRINE
     Indication: VASOPLEGIA SYNDROME
     Dosage: 0.26 UG/KG/MIN (20 UG/MIN)
  5. VASOPRESSIN. [Concomitant]
     Active Substance: VASOPRESSIN
     Dosage: 0.04 U/MIN (2.5 U/H)
  6. METHYLENE BLUE. [Concomitant]
     Active Substance: METHYLENE BLUE
  7. EPINEPHRINE. [Concomitant]
     Active Substance: EPINEPHRINE
     Dosage: 0.07 UG/KG/MIN (5 UG/MIN)
  8. EPINEPHRINE. [Concomitant]
     Active Substance: EPINEPHRINE
     Dosage: 0.13 UG/KG/MIN (10 UG/MIN)
  9. DOPAMINE [Concomitant]
     Active Substance: DOPAMINE HYDROCHLORIDE
     Indication: VASOPLEGIA SYNDROME
     Dosage: 5 UG/KG/MIN
  10. GIAPREZA [Suspect]
     Active Substance: ANGIOTENSIN II
     Indication: VASOPLEGIA SYNDROME
     Dosage: 80 NG/KG/MIN
  11. GLUCOCORTICOIDS [Concomitant]
     Active Substance: UNSPECIFIED INGREDIENT
  12. THIAMINE. [Concomitant]
     Active Substance: THIAMINE
  13. VASOPRESSIN. [Concomitant]
     Active Substance: VASOPRESSIN
     Indication: VASOPLEGIA SYNDROME
     Dosage: 0.13 U/MIN (8 U/H)

REACTIONS (1)
  - Acute kidney injury [Unknown]
